FAERS Safety Report 15289103 (Version 1)
Quarter: 2018Q3

REPORT INFORMATION
  Report Type: Spontaneous
  Country: US (occurrence: US)
  Receive Date: 20180803
  Receipt Date: 20180803
  Transmission Date: 20181010
  Serious: No
  Sender: FDA-Public Use
  Company Number: None

PATIENT
  Age: 74 Year
  Sex: Male
  Weight: 78.75 kg

DRUGS (12)
  1. BACLOFEN. [Concomitant]
     Active Substance: BACLOFEN
  2. NITROFURANTOIN. [Concomitant]
     Active Substance: NITROFURANTOIN
  3. VITAMIN C [Concomitant]
     Active Substance: ASCORBIC ACID
  4. HYDROCODONE [Concomitant]
     Active Substance: HYDROCODONE
  5. ZBEC [Concomitant]
  6. INVANZ [Suspect]
     Active Substance: ERTAPENEM SODIUM
     Indication: URINARY TRACT INFECTION
     Dosage: ?          QUANTITY:1 INJECTION(S);?
     Route: 030
  7. METOPROLOL. [Suspect]
     Active Substance: METOPROLOL
  8. INVANZ [Suspect]
     Active Substance: ERTAPENEM SODIUM
     Indication: ESCHERICHIA URINARY TRACT INFECTION
     Dosage: ?          QUANTITY:1 INJECTION(S);?
     Route: 030
  9. PROTONIX [Concomitant]
     Active Substance: PANTOPRAZOLE SODIUM
  10. MAGNESIUM [Concomitant]
     Active Substance: MAGNESIUM
  11. ALLEGRA?D [Concomitant]
     Active Substance: FEXOFENADINE\PSEUDOEPHEDRINE
  12. SINGULAIR [Concomitant]
     Active Substance: MONTELUKAST SODIUM

REACTIONS (4)
  - Hypertension [None]
  - Blood potassium decreased [None]
  - Hallucination [None]
  - Aggression [None]

NARRATIVE: CASE EVENT DATE: 20180628
